FAERS Safety Report 16077126 (Version 1)
Quarter: 2019Q1

REPORT INFORMATION
  Report Type: Spontaneous
  Country: US (occurrence: US)
  Receive Date: 20190315
  Receipt Date: 20190315
  Transmission Date: 20190418
  Serious: No
  Sender: FDA-Public Use
  Company Number: US-TEVA-2019-US-1019385

PATIENT
  Sex: Female

DRUGS (2)
  1. TRIAMTERENE/HYDROCHLOROTHIAZIDE TEVA [Suspect]
     Active Substance: HYDROCHLOROTHIAZIDE\TRIAMTERENE
     Indication: BLOOD PRESSURE MEASUREMENT
     Dosage: DOSE STRENGTH:  37.5/25MG
     Route: 065
  2. TRIAMTERENE/HYDROCHLOROTHIAZIDE  TEVA [Suspect]
     Active Substance: HYDROCHLOROTHIAZIDE\TRIAMTERENE
     Indication: POLYURIA

REACTIONS (3)
  - Weight increased [Unknown]
  - Drug ineffective [Unknown]
  - Product substitution issue [Unknown]
